FAERS Safety Report 17670164 (Version 1)
Quarter: 2020Q2

REPORT INFORMATION
  Report Type: Spontaneous
  Country: US (occurrence: US)
  Receive Date: 20200414
  Receipt Date: 20200414
  Transmission Date: 20200713
  Serious: Yes (Hospitalization)
  Sender: FDA-Public Use
  Company Number: None

PATIENT
  Age: 65 Year
  Sex: Female

DRUGS (9)
  1. ANTARA [Concomitant]
     Active Substance: FENOFIBRATE
  2. ZETIA HYDRALAZINE [Concomitant]
  3. PREMARIN [Concomitant]
     Active Substance: ESTROGENS, CONJUGATED
  4. DIOVAN [Concomitant]
     Active Substance: VALSARTAN
  5. NORVASE [Concomitant]
  6. COREG [Concomitant]
     Active Substance: CARVEDILOL
  7. TALTZ [Suspect]
     Active Substance: IXEKIZUMAB
     Indication: PSORIASIS
     Route: 058
     Dates: start: 20190928
  8. EFFEXOR [Concomitant]
     Active Substance: VENLAFAXINE HYDROCHLORIDE
  9. SYNTHROID [Concomitant]
     Active Substance: LEVOTHYROXINE SODIUM

REACTIONS (2)
  - Infection [None]
  - Surgery [None]

NARRATIVE: CASE EVENT DATE: 202002
